FAERS Safety Report 23969255 (Version 4)
Quarter: 2024Q3

REPORT INFORMATION
  Report Type: Spontaneous
  Country: US (occurrence: US)
  Receive Date: 20240612
  Receipt Date: 20240826
  Transmission Date: 20241017
  Serious: No
  Sender: BAUSCH AND LOMB
  Company Number: US-BAUSCHBL-2024BNL028285

PATIENT
  Age: 37 Year
  Sex: Female

DRUGS (1)
  1. XIIDRA [Suspect]
     Active Substance: LIFITEGRAST
     Indication: Dry eye
     Route: 065
     Dates: start: 202312

REACTIONS (10)
  - Dacryostenosis acquired [Unknown]
  - Sinus disorder [Unknown]
  - Rhinalgia [Unknown]
  - Eye pain [Unknown]
  - Dacryocystitis [Unknown]
  - Product residue present [Unknown]
  - Headache [Unknown]
  - Eye swelling [Unknown]
  - Vision blurred [Unknown]
  - Product after taste [Unknown]
